FAERS Safety Report 13949072 (Version 2)
Quarter: 2017Q4

REPORT INFORMATION
  Report Type: Spontaneous
  Country: DE (occurrence: DE)
  Receive Date: 20170908
  Receipt Date: 20171117
  Transmission Date: 20180320
  Serious: Yes (Death, Hospitalization, Other)
  Sender: FDA-Public Use
  Company Number: DE-ASTELLAS-2017US033862

PATIENT
  Sex: Male
  Weight: 135 kg

DRUGS (1)
  1. XTANDI [Suspect]
     Active Substance: ENZALUTAMIDE
     Indication: PROSTATE CANCER
     Route: 048
     Dates: start: 20170813, end: 20170819

REACTIONS (9)
  - Cardiac failure [Fatal]
  - Personality disorder [Unknown]
  - Multimorbidity [Unknown]
  - Death [Fatal]
  - Myocardial ischaemia [Fatal]
  - Organic brain syndrome [Fatal]
  - Dizziness [Fatal]
  - Syncope [Fatal]
  - Gait disturbance [Unknown]

NARRATIVE: CASE EVENT DATE: 20170814
